FAERS Safety Report 12439679 (Version 1)
Quarter: 2016Q2

REPORT INFORMATION
  Report Type: Spontaneous
  Country: GB (occurrence: GB)
  Receive Date: 20160606
  Receipt Date: 20160606
  Transmission Date: 20160815
  Serious: Yes (Hospitalization)
  Sender: FDA-Public Use
  Company Number: GB-WATSON-2016-11695

PATIENT
  Age: 60 Year
  Sex: Female

DRUGS (1)
  1. NAPROXEN (UNKNOWN) [Suspect]
     Active Substance: NAPROXEN
     Indication: INFLUENZA LIKE ILLNESS
     Dosage: 500 MG, BID
     Route: 048

REACTIONS (2)
  - Rash erythematous [Recovering/Resolving]
  - Herpes zoster [Unknown]
